FAERS Safety Report 11708527 (Version 1)
Quarter: 2015Q4

REPORT INFORMATION
  Report Type: Spontaneous
  Country: US (occurrence: US)
  Receive Date: 20151104
  Receipt Date: 20151104
  Transmission Date: 20160304
  Serious: No
  Sender: FDA-Public Use
  Company Number: US-ELI_LILLY_AND_COMPANY-US201107003377

PATIENT
  Age: 74 Year
  Sex: Female

DRUGS (3)
  1. FORTEO [Suspect]
     Active Substance: TERIPARATIDE
     Dosage: 20 UG, QD
  2. FORTEO [Suspect]
     Active Substance: TERIPARATIDE
     Dosage: 20 UG, QD
     Route: 065
  3. FORTEO [Suspect]
     Active Substance: TERIPARATIDE
     Indication: OSTEOPOROSIS
     Dosage: 20 UG, QD
     Route: 065
     Dates: start: 20110712

REACTIONS (13)
  - Pollakiuria [Unknown]
  - Malaise [Not Recovered/Not Resolved]
  - Discomfort [Unknown]
  - Anxiety [Unknown]
  - Injection site bruising [Unknown]
  - Nervousness [Unknown]
  - Panic disorder [Unknown]
  - Pain [Unknown]
  - Drug dose omission [Unknown]
  - Myalgia [Unknown]
  - Pain in extremity [Unknown]
  - Arthralgia [Recovering/Resolving]
  - Anger [Unknown]

NARRATIVE: CASE EVENT DATE: 201107
